FAERS Safety Report 4961225-X (Version None)
Quarter: 2006Q1

REPORT INFORMATION
  Report Type: 
  Country: None (occurrence: None)
  Receive Date: 20060329
  Receipt Date: 20060313
  Transmission Date: 20060701
  Serious: Yes (Other)
  Sender: FDA-Public Use
  Company Number: 13751

PATIENT
  Age: 9 Year
  Sex: Female

DRUGS (2)
  1. METHOTREXATE [Suspect]
     Indication: POLYARTHRITIS
     Dosage: 10 MG WEEKLY SC
     Route: 058
     Dates: start: 20051123
  2. PIROXICAM [Concomitant]

REACTIONS (1)
  - SKIN PAPILLOMA [None]
